FAERS Safety Report 8907365 (Version 1)
Quarter: 2012Q4

REPORT INFORMATION
  Report Type: 
  Country: US (occurrence: US)
  Receive Date: 20121113
  Receipt Date: 20121113
  Transmission Date: 20130627
  Serious: No
  Sender: FDA-Public Use
  Company Number: US-AMGEN-USASP2012010464

PATIENT
  Age: 63 Year
  Weight: 88.89 kg

DRUGS (6)
  1. ENBREL [Suspect]
     Indication: ARTHRITIS
     Dosage: 50 mg, qwk
     Route: 058
  2. METHOTREXATE [Concomitant]
     Dosage: 2.5 mg, UNK
  3. HYDROCHLOROTHIAZIDE [Concomitant]
     Dosage: 50 mg, UNK
  4. VITAMIN B-12 [Concomitant]
     Dosage: 1000 mug, UNK
  5. FLEXERIL                           /00428402/ [Concomitant]
     Dosage: 5 mg, UNK
  6. VITAMIN B6 [Concomitant]
     Dosage: 50 mg, UNK

REACTIONS (1)
  - Injection site pain [Unknown]
